FAERS Safety Report 17431259 (Version 3)
Quarter: 2020Q2

REPORT INFORMATION
  Report Type: Spontaneous
  Country: US (occurrence: US)
  Receive Date: 20200218
  Receipt Date: 20200408
  Transmission Date: 20200713
  Serious: Yes (Hospitalization)
  Sender: FDA-Public Use
  Company Number: US-ASTRAZENECA-2020SE22531

PATIENT
  Age: 73 Year
  Sex: Female
  Weight: 59.4 kg

DRUGS (10)
  1. SYMBICORT [Suspect]
     Active Substance: BUDESONIDE\FORMOTEROL FUMARATE DIHYDRATE
     Indication: CHRONIC OBSTRUCTIVE PULMONARY DISEASE
     Dosage: 80/4.5 MCG, ONE PUFF , TWO TIMES A DAY
     Route: 055
  2. ALBUTEROL SULFATE. [Suspect]
     Active Substance: ALBUTEROL SULFATE
     Indication: DYSPNOEA
     Dosage: EVERY FOUR HOURS
     Route: 065
  3. SYNTHROID [Concomitant]
     Active Substance: LEVOTHYROXINE SODIUM
     Indication: THYROID DISORDER
     Route: 065
  4. SYMBICORT [Suspect]
     Active Substance: BUDESONIDE\FORMOTEROL FUMARATE DIHYDRATE
     Indication: CHRONIC OBSTRUCTIVE PULMONARY DISEASE
     Dosage: 80/4.5 MCG, ONE PUFF , TWO TIMES A DAY
     Route: 055
  5. EYE DROPS [Concomitant]
     Active Substance: UNSPECIFIED INGREDIENT
     Route: 065
  6. SYMBICORT [Suspect]
     Active Substance: BUDESONIDE\FORMOTEROL FUMARATE DIHYDRATE
     Indication: ASTHMA
     Dosage: 80/4.5 MCG, ONE PUFF , TWO TIMES A DAY
     Route: 055
  7. SYMBICORT [Suspect]
     Active Substance: BUDESONIDE\FORMOTEROL FUMARATE DIHYDRATE
     Indication: ASTHMA
     Dosage: 80/4.5 MCG, ONE PUFF , TWO TIMES A DAY
     Route: 055
  8. SYMBICORT [Suspect]
     Active Substance: BUDESONIDE\FORMOTEROL FUMARATE DIHYDRATE
     Indication: ASTHMA
     Route: 055
  9. SYMBICORT [Suspect]
     Active Substance: BUDESONIDE\FORMOTEROL FUMARATE DIHYDRATE
     Indication: CHRONIC OBSTRUCTIVE PULMONARY DISEASE
     Route: 055
  10. SYNTHROID [Concomitant]
     Active Substance: LEVOTHYROXINE SODIUM
     Indication: THYROID DISORDER
     Dosage: GENERIC
     Route: 065

REACTIONS (19)
  - Tremor [Unknown]
  - Intentional device misuse [Unknown]
  - Thyroid disorder [Unknown]
  - Pain [Unknown]
  - Malaise [Unknown]
  - Contusion [Unknown]
  - Pneumonia bacterial [Unknown]
  - Diabetes mellitus [Unknown]
  - Abdominal pain upper [Unknown]
  - Weight decreased [Unknown]
  - Device malfunction [Unknown]
  - Dyspnoea [Unknown]
  - Cardiac disorder [Unknown]
  - Glare [Unknown]
  - Nausea [Unknown]
  - Impaired healing [Unknown]
  - Dysphagia [Unknown]
  - Vein rupture [Unknown]
  - Panic disorder [Unknown]

NARRATIVE: CASE EVENT DATE: 202001
